FAERS Safety Report 5195192-3 (Version None)
Quarter: 2006Q4

REPORT INFORMATION
  Report Type: 
  Country: None (occurrence: None)
  Receive Date: 20061229
  Receipt Date: 20060907
  Transmission Date: 20070319
  Serious: Yes (Hospitalization)
  Sender: FDA-Public Use
  Company Number: GB-PFIZER INC-2006109038

PATIENT
  Age: 58 Year
  Sex: Female
  Weight: 82.3 kg

DRUGS (4)
  1. ISTIN [Suspect]
     Indication: BLOOD PRESSURE
     Route: 048
  2. ATENOLOL [Concomitant]
     Route: 048
  3. LEVOTHYROXINE SODIUM [Concomitant]
     Route: 048
     Dates: start: 20050101
  4. CLIMESSE [Concomitant]
     Route: 048
     Dates: start: 19980101, end: 20060801

REACTIONS (2)
  - EYE DISORDER [None]
  - VISUAL DISTURBANCE [None]
